FAERS Safety Report 5011563-X (Version None)
Quarter: 2006Q2

REPORT INFORMATION
  Report Type: 
  Country: None (occurrence: None)
  Receive Date: 20060524
  Receipt Date: 20060511
  Transmission Date: 20061013
  Serious: Yes (Other)
  Sender: FDA-Public Use
  Company Number: 2006BH009664

PATIENT
  Age: 60 Year
  Sex: Female

DRUGS (8)
  1. DEXAMETHASONE [Suspect]
     Indication: MULTIPLE MYELOMA
  2. CYCLOPHOSPHAMIDE [Suspect]
     Indication: MULTIPLE MYELOMA
  3. ETOPOSIDE [Suspect]
     Indication: MULTIPLE MYELOMA
  4. CISPLATIN [Suspect]
     Indication: MULTIPLE MYELOMA
  5. BORTEZOMIB (BORTEZOMIB) [Suspect]
     Indication: MULTIPLE MYELOMA
  6. MELPHALAN [Concomitant]
  7. THALIDOMIDE [Concomitant]
  8. PREDNISOLONE [Concomitant]

REACTIONS (2)
  - HAEMATEMESIS [None]
  - MELAENA [None]
